FAERS Safety Report 4669059-0 (Version None)
Quarter: 2005Q2

REPORT INFORMATION
  Report Type: 
  Country: None (occurrence: None)
  Receive Date: 20050519
  Receipt Date: 20050510
  Transmission Date: 20051028
  Serious: Yes (Death, Hospitalization)
  Sender: FDA-Public Use
  Company Number: 2005073157

PATIENT
  Sex: Female

DRUGS (2)
  1. FRAGMIN [Suspect]
     Indication: ILL-DEFINED DISORDER
  2. HEPARIN [Concomitant]

REACTIONS (4)
  - BRAIN OEDEMA [None]
  - CEREBRAL HAEMORRHAGE [None]
  - POST PROCEDURAL COMPLICATION [None]
  - PULMONARY EMBOLISM [None]
